FAERS Safety Report 26146524 (Version 1)
Quarter: 2025Q4

REPORT INFORMATION
  Report Type: Spontaneous
  Country: US (occurrence: US)
  Receive Date: 20251211
  Receipt Date: 20251211
  Transmission Date: 20260117
  Serious: No
  Sender: NOVARTIS
  Company Number: US-002147023-NVSC2025US187998

PATIENT
  Sex: Female
  Weight: 145 kg

DRUGS (1)
  1. COSENTYX [Suspect]
     Active Substance: SECUKINUMAB
     Indication: Psoriasis
     Dosage: 300 ML, QMO (COSENTYX UNO INJ 300/2ML)
     Route: 030
     Dates: start: 20211212, end: 20250528

REACTIONS (1)
  - Viral infection [Not Recovered/Not Resolved]
